FAERS Safety Report 9784580 (Version 2)
Quarter: 2013Q4

REPORT INFORMATION
  Report Type: Report from Study
  Country: VE (occurrence: VE)
  Receive Date: 20131226
  Receipt Date: 20131226
  Transmission Date: 20140711
  Serious: Yes (Other)
  Sender: FDA-Public Use
  Company Number: VE-ABBVIE-13P-178-1038407-00

PATIENT
  Age: 55 Year
  Sex: Female
  Weight: 80 kg

DRUGS (4)
  1. HUMIRA [Suspect]
     Indication: RHEUMATOID ARTHRITIS
     Route: 058
     Dates: start: 20110719, end: 20121205
  2. HUMIRA [Suspect]
     Dates: start: 201302, end: 201309
  3. HUMIRA [Suspect]
     Dates: start: 201311
  4. DIOVENOR [Concomitant]
     Indication: VARICOSE VEIN

REACTIONS (3)
  - Phlebitis [Recovered/Resolved]
  - Cough [Recovered/Resolved]
  - Influenza [Recovered/Resolved]
